FAERS Safety Report 8591018-6 (Version None)
Quarter: 2012Q3

REPORT INFORMATION
  Report Type: 
  Country: None (occurrence: None)
  Receive Date: 20120813
  Receipt Date: 20120809
  Transmission Date: 20120928
  Serious: Yes (Other)
  Sender: FDA-Public Use
  Company Number: US-PFIZER INC-2012195876

PATIENT
  Age: 41 Year
  Sex: Female

DRUGS (1)
  1. EPIPEN [Suspect]
     Dosage: UNK %, UNK
     Dates: start: 20120731

REACTIONS (3)
  - HYPOAESTHESIA [None]
  - ACCIDENTAL EXPOSURE [None]
  - PAIN IN EXTREMITY [None]
